FAERS Safety Report 11482844 (Version 1)
Quarter: 2015Q3

REPORT INFORMATION
  Report Type: Spontaneous
  Country: US (occurrence: US)
  Receive Date: 20150909
  Receipt Date: 20150909
  Transmission Date: 20151125
  Serious: No
  Sender: FDA-Public Use
  Company Number: US-JAZZ-JPI-P-004758

PATIENT
  Age: 55 Year
  Sex: Female

DRUGS (2)
  1. XYREM [Suspect]
     Active Substance: SODIUM OXYBATE
     Dosage: 2.25 G, BID
     Route: 048
     Dates: start: 201408
  2. XYREM [Suspect]
     Active Substance: SODIUM OXYBATE
     Indication: NARCOLEPSY
     Dosage: 2.25 G, BID
     Route: 048
     Dates: start: 200809, end: 2008

REACTIONS (8)
  - Nausea [Recovering/Resolving]
  - Chills [Recovering/Resolving]
  - Urine output decreased [Recovered/Resolved]
  - Muscular weakness [Recovering/Resolving]
  - Feeling of body temperature change [Recovering/Resolving]
  - Dizziness [Recovering/Resolving]
  - Tremor [Recovering/Resolving]
  - Thirst [Recovering/Resolving]

NARRATIVE: CASE EVENT DATE: 200809
